FAERS Safety Report 18600475 (Version 1)
Quarter: 2020Q4

REPORT INFORMATION
  Report Type: Spontaneous
  Country: US (occurrence: US)
  Receive Date: 20201210
  Receipt Date: 20201210
  Transmission Date: 20210114
  Serious: Yes (Hospitalization)
  Sender: FDA-Public Use
  Company Number: None

PATIENT
  Age: 73 Year
  Sex: Male
  Weight: 86.2 kg

DRUGS (1)
  1. BAMLANIVIMAB. [Suspect]
     Active Substance: BAMLANIVIMAB
     Indication: COVID-19
     Dosage: ?          OTHER FREQUENCY:ONCE;?
     Route: 041
     Dates: start: 20201124, end: 20201124

REACTIONS (5)
  - COVID-19 pneumonia [None]
  - Dyspnoea [None]
  - Blood alkaline phosphatase increased [None]
  - Oxygen saturation decreased [None]
  - Bacterial infection [None]

NARRATIVE: CASE EVENT DATE: 20201201
